FAERS Safety Report 20977498 (Version 1)
Quarter: 2022Q2

REPORT INFORMATION
  Report Type: Report from Study
  Country: AR (occurrence: AR)
  Receive Date: 20220618
  Receipt Date: 20220618
  Transmission Date: 20220721
  Serious: Yes (Other)
  Sender: FDA-Public Use
  Company Number: AR-ABBVIE-22K-007-4437909-00

PATIENT
  Sex: Male

DRUGS (1)
  1. HUMIRA [Suspect]
     Active Substance: ADALIMUMAB
     Indication: Psoriasis
     Route: 058
     Dates: start: 20161207

REACTIONS (3)
  - Cerebrovascular disorder [Recovering/Resolving]
  - Oropharyngeal discomfort [Not Recovered/Not Resolved]
  - Pyrexia [Not Recovered/Not Resolved]
